FAERS Safety Report 4695695-1 (Version None)
Quarter: 2005Q2

REPORT INFORMATION
  Report Type: 
  Country: None (occurrence: None)
  Receive Date: 20050608
  Receipt Date: 20050328
  Transmission Date: 20051028
  Serious: Yes (Other)
  Sender: FDA-Public Use
  Company Number: 400018

PATIENT

DRUGS (3)
  1. ACCUTANE [Suspect]
     Dates: start: 20031002, end: 20031015
  2. ISOTRETINOIN [Suspect]
     Dates: start: 20031115, end: 20031115
  3. ORAL CONTRACEPTIVES NOS (ORAL CONTRACEPTIVES NOS) [Concomitant]

REACTIONS (2)
  - ABORTION SPONTANEOUS [None]
  - PREGNANCY [None]
